FAERS Safety Report 19030047 (Version 1)
Quarter: 2021Q1

REPORT INFORMATION
  Report Type: Report from Study
  Country: US (occurrence: US)
  Receive Date: 20210319
  Receipt Date: 20210319
  Transmission Date: 20210420
  Serious: Yes (Hospitalization)
  Sender: FDA-Public Use
  Company Number: US-TOPROL-2021000051

PATIENT
  Age: 88 Year
  Sex: Female
  Weight: 59.01 kg

DRUGS (12)
  1. ATORVASTATIN [Concomitant]
     Active Substance: ATORVASTATIN
     Route: 065
  2. LISINOPRIL. [Suspect]
     Active Substance: LISINOPRIL
     Route: 048
     Dates: start: 20201104
  3. CLOPIDOGREL [Concomitant]
     Active Substance: CLOPIDOGREL BISULFATE
     Route: 065
  4. THERAPEUTIC M [Concomitant]
     Route: 065
  5. METOPROLOL SUCCINATE. [Suspect]
     Active Substance: METOPROLOL SUCCINATE
     Route: 048
     Dates: start: 20201209
  6. TROSPIUM [Concomitant]
     Active Substance: TROSPIUM
     Route: 065
  7. GABAPENTIN. [Concomitant]
     Active Substance: GABAPENTIN
     Route: 065
  8. ACETAMINOPHEN. [Concomitant]
     Active Substance: ACETAMINOPHEN
     Route: 065
  9. CORTISONE [Concomitant]
     Active Substance: CORTISONE
     Route: 065
  10. CALCIUM CARBONATE/CHOLECALCIFEROL [Concomitant]
     Active Substance: CALCIUM CARBONATE\CHOLECALCIFEROL
     Route: 065
  11. GLIPIZIDE. [Concomitant]
     Active Substance: GLIPIZIDE
     Route: 065
  12. METRONIDAZOLE. [Concomitant]
     Active Substance: METRONIDAZOLE
     Route: 065

REACTIONS (1)
  - Hyperkalaemia [Recovered/Resolved]

NARRATIVE: CASE EVENT DATE: 20210225
